FAERS Safety Report 18232660 (Version 3)
Quarter: 2020Q4

REPORT INFORMATION
  Report Type: Report from Study
  Country: US (occurrence: US)
  Receive Date: 20200904
  Receipt Date: 20201009
  Transmission Date: 20210113
  Serious: Yes (Other)
  Sender: FDA-Public Use
  Company Number: US-BIOGEN-2020BI00917846

PATIENT
  Age: 34 Year
  Sex: Male

DRUGS (5)
  1. TECFIDERA [Suspect]
     Active Substance: DIMETHYL FUMARATE
     Dosage: (TECFIDERA) WEEK 3: 120MG/240MG BREAKFAST/DINNER [08/28/20]
     Route: 048
     Dates: start: 20200828
  2. TECFIDERA [Suspect]
     Active Substance: DIMETHYL FUMARATE
     Indication: MULTIPLE SCLEROSIS
     Dosage: (TECFIDERA) WEEK 1: 120MG (FROM 14 AUG 2020)
     Route: 048
     Dates: start: 20200814, end: 20200821
  3. TECFIDERA [Suspect]
     Active Substance: DIMETHYL FUMARATE
     Dosage: (TECFIDERA) WEEK 4: 240MG TWICE A DAY [09/04/2020]?MAINTENANCE DOSE
     Route: 048
     Dates: start: 20200904
  4. TECFIDERA [Suspect]
     Active Substance: DIMETHYL FUMARATE
     Dosage: (TECFIDERA) WEEK 3: 120MG/240MG BREAKFAST/DINNER [08/28/20]
     Route: 048
     Dates: start: 20200828
  5. TECFIDERA [Suspect]
     Active Substance: DIMETHYL FUMARATE
     Dosage: (TECFIDERA) WEEK 2: 240MG (FROM 21 AUG 2020)
     Route: 048
     Dates: start: 20200821

REACTIONS (8)
  - Chromaturia [Not Recovered/Not Resolved]
  - Prescribed underdose [Unknown]
  - Breath sounds abnormal [Unknown]
  - Abdominal distension [Unknown]
  - Muscle twitching [Unknown]
  - Gastrointestinal sounds abnormal [Unknown]
  - Myocardial infarction [Unknown]
  - Muscle spasms [Unknown]

NARRATIVE: CASE EVENT DATE: 20200814
